FAERS Safety Report 7046433-9 (Version None)
Quarter: 2010Q4

REPORT INFORMATION
  Report Type: 
  Country: None (occurrence: None)
  Receive Date: 20101014
  Receipt Date: 20101003
  Transmission Date: 20110411
  Serious: No
  Sender: FDA-Public Use
  Company Number: US-PFIZER INC-2010125711

PATIENT
  Sex: Male
  Weight: 135 kg

DRUGS (2)
  1. DETROL LA [Suspect]
     Indication: HYPERTONIC BLADDER
     Dosage: 4 MG,  ONCE PER DAILY
     Route: 048
     Dates: start: 20101001
  2. ZYPREXA [Concomitant]
     Indication: BIPOLAR DISORDER
     Dosage: UNK

REACTIONS (1)
  - POLLAKIURIA [None]
